FAERS Safety Report 16600081 (Version 2)
Quarter: 2019Q3

REPORT INFORMATION
  Report Type: Spontaneous
  Country: IT (occurrence: IT)
  Receive Date: 20190720
  Receipt Date: 20190808
  Transmission Date: 20191004
  Serious: Yes (Other)
  Sender: FDA-Public Use
  Company Number: IT-AUROBINDO-AUR-APL-2019-042253

PATIENT

DRUGS (1)
  1. ARIPIPRAZOLE AUROBINDO TABLETS [Suspect]
     Active Substance: ARIPIPRAZOLE
     Indication: BIPOLAR DISORDER
     Dosage: 10 MILLIGRAM, ONCE A DAY
     Route: 048

REACTIONS (6)
  - Disorientation [Recovering/Resolving]
  - Depressed mood [Recovering/Resolving]
  - Paraesthesia [Recovering/Resolving]
  - Agitation [Recovering/Resolving]
  - Tachyarrhythmia [Recovering/Resolving]
  - Confusional state [Recovering/Resolving]

NARRATIVE: CASE EVENT DATE: 20190601
